FAERS Safety Report 6084254-4 (Version None)
Quarter: 2009Q1

REPORT INFORMATION
  Report Type: 
  Country: None (occurrence: None)
  Receive Date: 20090219
  Receipt Date: 20090212
  Transmission Date: 20090719
  Serious: Yes (Other)
  Sender: FDA-Public Use
  Company Number: US-ELI_LILLY_AND_COMPANY-US200902003703

PATIENT
  Sex: Male

DRUGS (5)
  1. HUMULIN R [Suspect]
     Dosage: UNK, UNK
     Dates: start: 20070101
  2. HUMULIN N [Suspect]
  3. HUMULIN L [Suspect]
  4. HUMALOG [Suspect]
  5. LANTUS [Concomitant]

REACTIONS (1)
  - CEREBROVASCULAR ACCIDENT [None]
